FAERS Safety Report 9342817 (Version 1)
Quarter: 2013Q2

REPORT INFORMATION
  Report Type: Spontaneous
  Country: AE (occurrence: AE)
  Receive Date: 20130611
  Receipt Date: 20130611
  Transmission Date: 20140414
  Serious: Yes (Life-Threatening)
  Sender: FDA-Public Use
  Company Number: AE-UCBSA-088390

PATIENT
  Age: 8 Year
  Sex: Male

DRUGS (2)
  1. KEPPRA [Suspect]
     Indication: MYOCLONIC EPILEPSY
     Dosage: SOLUTION
     Dates: start: 20130131, end: 20130428
  2. TEGRETOL [Concomitant]

REACTIONS (1)
  - Convulsion [Recovered/Resolved]
